FAERS Safety Report 4584929-X (Version None)
Quarter: 2005Q1

REPORT INFORMATION
  Report Type: 
  Country: None (occurrence: None)
  Receive Date: 20050217
  Receipt Date: 20041115
  Transmission Date: 20050727
  Serious: No
  Sender: FDA-Public Use
  Company Number: US-GLAXOSMITHKLINE-A0533963A

PATIENT
  Age: 26 Year
  Sex: Female

DRUGS (2)
  1. WELLBUTRIN XL [Suspect]
     Indication: DEPRESSION
     Dosage: 300MG PER DAY
     Route: 048
  2. CYMBALTA [Concomitant]
     Dosage: 40MG PER DAY
     Route: 065

REACTIONS (3)
  - DEPRESSION [None]
  - DIZZINESS [None]
  - ORTHOSTATIC HYPOTENSION [None]
